FAERS Safety Report 6891359-4 (Version None)
Quarter: 2010Q3

REPORT INFORMATION
  Report Type: 
  Country: None (occurrence: None)
  Receive Date: 20100731
  Receipt Date: 20061025
  Transmission Date: 20110219
  Serious: No
  Sender: FDA-Public Use
  Company Number: US-PFIZER INC-2006117824

PATIENT
  Sex: Male
  Weight: 95.25 kg

DRUGS (3)
  1. DEPO-MEDROL [Suspect]
     Indication: DERMATITIS CONTACT
     Dates: start: 20060706, end: 20060706
  2. MEDROL [Suspect]
     Indication: DERMATITIS CONTACT
  3. PREDNISONE [Suspect]
     Indication: DERMATITIS CONTACT

REACTIONS (2)
  - BLOOD GLUCOSE INCREASED [None]
  - DRUG INEFFECTIVE [None]
